FAERS Safety Report 7896954-1 (Version None)
Quarter: 2011Q4

REPORT INFORMATION
  Report Type: 
  Country: None (occurrence: None)
  Receive Date: 20111107
  Receipt Date: 20111024
  Transmission Date: 20120403
  Serious: Yes (Life-Threatening)
  Sender: FDA-Public Use
  Company Number: GB-RANBAXY-2011R1-49979

PATIENT
  Age: 20 Year
  Sex: Female

DRUGS (1)
  1. CIPRO [Suspect]
     Indication: LOWER RESPIRATORY TRACT INFECTION
     Dosage: UNK
     Route: 048
     Dates: start: 20110915, end: 20110915

REACTIONS (4)
  - OEDEMA MOUTH [None]
  - EYE SWELLING [None]
  - LIP SWELLING [None]
  - THROAT TIGHTNESS [None]
